FAERS Safety Report 8072630-X (Version None)
Quarter: 2012Q1

REPORT INFORMATION
  Report Type: 
  Country: None (occurrence: None)
  Receive Date: 20120126
  Receipt Date: 20120119
  Transmission Date: 20120608
  Serious: Yes (Hospitalization, Other)
  Sender: FDA-Public Use
  Company Number: US-BAYER-2010-001533

PATIENT
  Age: 22 Year
  Sex: Female
  Weight: 68.027 kg

DRUGS (19)
  1. HYDROCODONE BITARTRATE AND ACETAMINOPHEN [Concomitant]
  2. CLINDAMYCIN [Concomitant]
     Dosage: 150 MG, UNK
  3. AMITRIPTYLINE HCL [Concomitant]
     Dosage: 150 MG, UNK
  4. ETHINYL ESTRADIOL W/NORGESTREL [Concomitant]
  5. YASMIN [Suspect]
     Indication: PRODUCT USED FOR UNKNOWN INDICATION
     Dosage: UNK
     Dates: start: 20050101, end: 20080101
  6. ALPRAZOLAM [Concomitant]
     Dosage: 0.5 MG, UNK
  7. OXYBUTYNIN [Concomitant]
     Dosage: 5 MG, UNK
  8. YAZ [Suspect]
     Indication: PRODUCT USED FOR UNKNOWN INDICATION
     Dosage: UNK
     Dates: start: 20050101, end: 20080101
  9. TRAMADOL HCL [Concomitant]
     Indication: PAIN
     Dosage: 50 MG, UNK
  10. BACTRIM [Concomitant]
     Dosage: 800 MG, UNK
  11. ROZEREM [Concomitant]
  12. HALOPERIDOL [Concomitant]
     Dosage: 0.5 MG, UNK
  13. CARISOPRODOL [Concomitant]
     Dosage: 350 MG, UNK
  14. MEPHYTON [Concomitant]
     Dosage: 5 MG, UNK
  15. FLUOXETINE [Concomitant]
     Dosage: 40 MG, UNK
  16. SENNA S [Concomitant]
  17. LORATADINE [Concomitant]
     Dosage: 10 MG, UNK
  18. ZEBUTAL [Concomitant]
  19. GEODON [Concomitant]
     Dosage: 40 MG, UNK

REACTIONS (4)
  - PULMONARY EMBOLISM [None]
  - CHOLECYSTECTOMY [None]
  - INTRACARDIAC THROMBUS [None]
  - GASTROINTESTINAL INJURY [None]
